FAERS Safety Report 14347481 (Version 1)
Quarter: 2018Q1

REPORT INFORMATION
  Report Type: Spontaneous
  Country: CA (occurrence: CA)
  Receive Date: 20180103
  Receipt Date: 20180103
  Transmission Date: 20180509
  Serious: Yes (Other)
  Sender: FDA-Public Use
  Company Number: CA-SA-2017SA268901

PATIENT
  Sex: Male

DRUGS (13)
  1. RITUXAN [Suspect]
     Active Substance: RITUXIMAB
     Dosage: FORM- SOLUTION INTRAVENOUS
     Route: 042
  2. HYDROXYCHLOROQUINE [Suspect]
     Active Substance: HYDROXYCHLOROQUINE
     Route: 048
  3. METHOTREXATE SODIUM. [Suspect]
     Active Substance: METHOTREXATE SODIUM
     Route: 065
  4. DESOXIMETASONE. [Concomitant]
     Active Substance: DESOXIMETASONE
     Route: 048
  5. ZOSTAVAX [Suspect]
     Active Substance: VARICELLA-ZOSTER VIRUS STRAIN OKA/MERCK LIVE ANTIGEN
     Dosage: FORM POWDER FOR SUSPENSION SUBCUTANEOUS
     Route: 042
  6. ENBREL [Suspect]
     Active Substance: ETANERCEPT
     Route: 065
  7. XELJANZ [Concomitant]
     Active Substance: TOFACITINIB CITRATE
     Indication: RHEUMATOID ARTHRITIS
     Route: 065
  8. LEFLUNOMIDE. [Suspect]
     Active Substance: LEFLUNOMIDE
     Route: 048
  9. REMICADE [Suspect]
     Active Substance: INFLIXIMAB
     Route: 042
  10. ORENCIA [Suspect]
     Active Substance: ABATACEPT
     Route: 065
  11. SULFASALAZINE. [Suspect]
     Active Substance: SULFASALAZINE
     Route: 065
  12. HUMIRA [Suspect]
     Active Substance: ADALIMUMAB
     Dosage: FORM- SOLUTION SUBCUTANEOUS
     Route: 058
  13. DICLOFENAC [Concomitant]
     Active Substance: DICLOFENAC
     Route: 065

REACTIONS (7)
  - Alopecia [Unknown]
  - Drug ineffective [Unknown]
  - Tooth loss [Unknown]
  - Drug intolerance [Unknown]
  - Lymphoma [Unknown]
  - Onychoclasis [Unknown]
  - Neoplasm malignant [Unknown]
